FAERS Safety Report 16586992 (Version 1)
Quarter: 2019Q3

REPORT INFORMATION
  Report Type: Spontaneous
  Country: US (occurrence: US)
  Receive Date: 20190717
  Receipt Date: 20190717
  Transmission Date: 20191004
  Serious: No
  Sender: FDA-Public Use
  Company Number: US-SA-2019SA189726

PATIENT
  Age: 71 Year
  Sex: Male

DRUGS (1)
  1. LANTUS [Suspect]
     Active Substance: INSULIN GLARGINE
     Indication: TYPE 2 DIABETES MELLITUS
     Dosage: 10 UNITS IN THE AM 25 UNITS AT NIGHT
     Dates: start: 201901

REACTIONS (2)
  - Inappropriate schedule of product administration [Unknown]
  - Device issue [Unknown]

NARRATIVE: CASE EVENT DATE: 201901
